FAERS Safety Report 5024116-4 (Version None)
Quarter: 2006Q2

REPORT INFORMATION
  Report Type: 
  Country: None (occurrence: None)
  Receive Date: 20060607
  Receipt Date: 20060522
  Transmission Date: 20061013
  Serious: Yes (Hospitalization, Other)
  Sender: FDA-Public Use
  Company Number: 8017126

PATIENT
  Age: 46 Year
  Sex: Female

DRUGS (3)
  1. KEPPRA [Suspect]
     Indication: NEURALGIA
     Dosage: 500 MG 3/D PO
     Route: 048
     Dates: start: 20050801, end: 20051027
  2. PROZAC [Concomitant]
  3. LEXAPRO [Concomitant]

REACTIONS (12)
  - AGITATION [None]
  - ANGER [None]
  - DIVORCED [None]
  - HOSTILITY [None]
  - IMPRISONMENT [None]
  - LEGAL PROBLEM [None]
  - LOSS OF EMPLOYMENT [None]
  - MEMORY IMPAIRMENT [None]
  - PARENT-CHILD PROBLEM [None]
  - PHARMACEUTICAL PRODUCT COMPLAINT [None]
  - SUICIDAL IDEATION [None]
  - SUICIDE ATTEMPT [None]
